FAERS Safety Report 9592831 (Version 2)
Quarter: 2013Q4

REPORT INFORMATION
  Report Type: Report from Study
  Country: US (occurrence: GB)
  Receive Date: 20131004
  Receipt Date: 20131004
  Transmission Date: 20140711
  Serious: Yes (Hospitalization, Other)
  Sender: FDA-Public Use
  Company Number: PHHO2011GB14226

PATIENT
  Sex: Male

DRUGS (4)
  1. DICLOFENAC [Suspect]
     Dosage: UNK
     Dates: end: 20110802
  2. IPILIMUMAB [Suspect]
     Indication: MALIGNANT MELANOMA
     Dosage: 9 MG/KG, UNK
     Route: 042
     Dates: start: 20110621, end: 20110809
  3. TRAMADOL [Concomitant]
  4. OMEPRAZOLE [Concomitant]

REACTIONS (4)
  - Tubulointerstitial nephritis [Recovered/Resolved]
  - Blood creatinine increased [Unknown]
  - Haematuria [Unknown]
  - Blood bilirubin increased [Not Recovered/Not Resolved]
